FAERS Safety Report 8974731 (Version 1)
Quarter: 2012Q4

REPORT INFORMATION
  Report Type: 
  Country: FR (occurrence: FR)
  Receive Date: 20121220
  Receipt Date: 20121220
  Transmission Date: 20130627
  Serious: Yes (Other)
  Sender: FDA-Public Use
  Company Number: FR-ELI_LILLY_AND_COMPANY-FR201212003921

PATIENT
  Sex: Male

DRUGS (1)
  1. FORSTEO [Suspect]

REACTIONS (2)
  - Prostate cancer metastatic [Unknown]
  - Metastases to bone [Unknown]
